FAERS Safety Report 15388697 (Version 1)
Quarter: 2018Q3

REPORT INFORMATION
  Report Type: Spontaneous
  Country: US (occurrence: US)
  Receive Date: 20180907
  Receipt Date: 20180907
  Transmission Date: 20181010
  Serious: Yes (Hospitalization)
  Sender: FDA-Public Use
  Company Number: None

PATIENT
  Age: 16 Year
  Sex: Male
  Weight: 86.2 kg

DRUGS (6)
  1. CYTARABINE. [Suspect]
     Active Substance: CYTARABINE
     Dates: end: 20180807
  2. ONCASPAR [Suspect]
     Active Substance: PEGASPARGASE
     Dates: end: 20180807
  3. VINCRISTINE SULFATE. [Concomitant]
     Active Substance: VINCRISTINE SULFATE
     Dates: end: 20180827
  4. VINCRISTINE SULFATE. [Suspect]
     Active Substance: VINCRISTINE SULFATE
     Dates: end: 20180827
  5. DAUNORUBICIN [Suspect]
     Active Substance: DAUNORUBICIN
     Dates: end: 20180827
  6. PREDNISONE. [Suspect]
     Active Substance: PREDNISONE
     Dates: end: 20180902

REACTIONS (6)
  - Dyspnoea [None]
  - Metabolic acidosis [None]
  - Pancreatitis [None]
  - Tachycardia [None]
  - Blood sodium decreased [None]
  - Diabetic ketoacidosis [None]

NARRATIVE: CASE EVENT DATE: 20180903
